FAERS Safety Report 18378656 (Version 8)
Quarter: 2021Q3

REPORT INFORMATION
  Report Type: Report from Study
  Country: CA (occurrence: CA)
  Receive Date: 20201013
  Receipt Date: 20210813
  Transmission Date: 20211014
  Serious: Yes (Other)
  Sender: FDA-Public Use
  Company Number: CA-TAKEDA-2020TUS042487

PATIENT
  Age: 61 Year
  Sex: Male
  Weight: 95 kg

DRUGS (6)
  1. IXAZOMIB [Suspect]
     Active Substance: IXAZOMIB
     Dosage: 3 MILLIGRAM
     Route: 048
  2. IXAZOMIB [Suspect]
     Active Substance: IXAZOMIB
     Indication: PLASMA CELL MYELOMA
     Dosage: 4 MILLIGRAM
     Route: 048
     Dates: start: 20200403
  3. IXAZOMIB [Suspect]
     Active Substance: IXAZOMIB
     Dosage: 4 MILLIGRAM
     Route: 048
  4. REVLIMID [Concomitant]
     Active Substance: LENALIDOMIDE
     Dosage: UNK
     Route: 065
  5. IXAZOMIB [Suspect]
     Active Substance: IXAZOMIB
     Dosage: 2.3 MILLIGRAM
     Route: 048
  6. DEXAMETHASONE. [Concomitant]
     Active Substance: DEXAMETHASONE
     Dosage: UNK
     Route: 065

REACTIONS (6)
  - Neuropathy peripheral [Unknown]
  - Light chain analysis increased [Unknown]
  - Somnolence [Recovered/Resolved]
  - Bone lesion [Unknown]
  - Osteomyelitis [Not Recovered/Not Resolved]
  - Pseudomonas test positive [Unknown]

NARRATIVE: CASE EVENT DATE: 20210312
